FAERS Safety Report 6556033-2 (Version None)
Quarter: 2010Q1

REPORT INFORMATION
  Report Type: 
  Country: None (occurrence: None)
  Receive Date: 20100128
  Receipt Date: 20090127
  Transmission Date: 20100710
  Serious: No
  Sender: FDA-Public Use
  Company Number: US-TEVA-184828USA

PATIENT
  Sex: Female
  Weight: 67 kg

DRUGS (2)
  1. COPAXONE [Suspect]
     Indication: MULTIPLE SCLEROSIS
     Route: 058
  2. INTERFERON BETA-1A [Suspect]
     Indication: MULTIPLE SCLEROSIS
     Dates: start: 20081216

REACTIONS (4)
  - DYSPNOEA [None]
  - FATIGUE [None]
  - HEART RATE INCREASED [None]
  - TREMOR [None]
